FAERS Safety Report 18923502 (Version 1)
Quarter: 2021Q1

REPORT INFORMATION
  Report Type: Spontaneous
  Country: US (occurrence: US)
  Receive Date: 20210222
  Receipt Date: 20210222
  Transmission Date: 20210420
  Serious: Yes (Hospitalization)
  Sender: FDA-Public Use
  Company Number: US-FERRINGPH-2020FE07048

PATIENT
  Age: 41 Year
  Sex: Male

DRUGS (2)
  1. DDAVP [Suspect]
     Active Substance: DESMOPRESSIN ACETATE
     Indication: DIABETES INSIPIDUS
     Dosage: 10 UG, 2 TIMES DAILY
     Route: 045
  2. DDAVP [Suspect]
     Active Substance: DESMOPRESSIN ACETATE
     Dosage: DECREASED DOSE AND ONLY TAKES WHEN NEEDS IT
     Route: 045

REACTIONS (5)
  - Overdose [Recovered/Resolved]
  - Recalled product administered [Recovered/Resolved]
  - Out of specification product use [Recovered/Resolved]
  - Hyponatraemia [Recovered/Resolved]
  - Illness [Recovered/Resolved]

NARRATIVE: CASE EVENT DATE: 20200727
